FAERS Safety Report 6171132-5 (Version None)
Quarter: 2009Q2

REPORT INFORMATION
  Report Type: 
  Country: None (occurrence: None)
  Receive Date: 20090427
  Receipt Date: 20090420
  Transmission Date: 20091009
  Serious: Yes (Other)
  Sender: FDA-Public Use
  Company Number: JHP200900122

PATIENT
  Sex: Female

DRUGS (1)
  1. PITRESSIN [Suspect]
     Indication: HAEMOSTASIS
     Dosage: 7-13 U INTRAMYOMETRIAL AND INTRAVAGINAL INJECTIONS, OTHER
     Route: 050

REACTIONS (1)
  - OLIGURIA [None]
